FAERS Safety Report 15137461 (Version 2)
Quarter: 2018Q3

REPORT INFORMATION
  Report Type: Report from Study
  Country: KR (occurrence: KR)
  Receive Date: 20180712
  Receipt Date: 20180727
  Transmission Date: 20181010
  Serious: Yes (Death)
  Sender: FDA-Public Use
  Company Number: KR-JNJFOC-20180709233

PATIENT
  Sex: Male

DRUGS (19)
  1. ACETAMINOPHEN. [Concomitant]
     Active Substance: ACETAMINOPHEN
  2. KALIMATE [Concomitant]
     Active Substance: CALCIUM POLYSTYRENE SULFONATE
     Dosage: 8DAY
  3. ACELEX [Concomitant]
     Dosage: 8 DAY
  4. NESP [Concomitant]
     Active Substance: DARBEPOETIN ALFA
  5. HEPARIN [Concomitant]
     Active Substance: HEPARIN SODIUM
     Dosage: 1,000 IU VIAL (0.5 VIAL)
  6. MEGESTROL [Concomitant]
     Active Substance: MEGESTROL
     Dosage: 20ML/PACK
  7. SEPTRIN [Concomitant]
     Active Substance: SULFAMETHOXAZOLE\TRIMETHOPRIM
     Dosage: 8 DAY
  8. PENIRAMIN [Concomitant]
     Dosage: 4MG/AMP 1 AMP/DAY
  9. HEPARIN [Concomitant]
     Active Substance: HEPARIN SODIUM
     Dosage: 1,000 IU VIAL, 1 VIAL
  10. DEXAMETHASONE. [Concomitant]
     Active Substance: DEXAMETHASONE
     Dosage: 5MG/AMP,  DAY
  11. CURAN [Concomitant]
     Active Substance: RANITIDINE HYDROCHLORIDE
     Dosage: 50MG/AMP ? 1 AMP /DAY
  12. FENTANYL. [Concomitant]
     Active Substance: FENTANYL
     Dosage: 25MCG/H, 3 DAY
     Route: 051
  13. DARATUMUMAB [Suspect]
     Active Substance: DARATUMUMAB
     Indication: PLASMA CELL MYELOMA
     Dosage: 100 MG VIAL, 1.8 QD 1 DAY
     Route: 042
     Dates: start: 20180413, end: 20180530
  14. DARATUMUMAB [Suspect]
     Active Substance: DARATUMUMAB
     Indication: PLASMA CELL MYELOMA
     Dosage: 400 MG VIAL, 2 QD 1 DAY
     Route: 042
  15. SOLONE [Concomitant]
     Active Substance: PREDNISOLONE
     Dosage: 1 DAY
  16. GLUPA [Concomitant]
     Active Substance: METFORMIN HYDROCHLORIDE
     Dosage: 8 DAY
  17. AMARYL [Concomitant]
     Active Substance: GLIMEPIRIDE
     Dosage: 8 DAY
  18. MIDRON [Concomitant]
     Dosage: 8 DAY
  19. TARGIN [Concomitant]
     Active Substance: NALOXONE HYDROCHLORIDE\OXYCODONE HYDROCHLORIDE
     Dosage: 20/10MG, 8 DAY

REACTIONS (1)
  - Death [Fatal]
